FAERS Safety Report 19247908 (Version 6)
Quarter: 2021Q2

REPORT INFORMATION
  Report Type: Report from Study
  Country: TR (occurrence: TR)
  Receive Date: 20210512
  Receipt Date: 20210607
  Transmission Date: 20210717
  Serious: Yes (Hospitalization)
  Sender: FDA-Public Use
  Company Number: TR-EISAI MEDICAL RESEARCH-EC-2021-092604

PATIENT
  Age: 68 Year
  Sex: Male
  Weight: 70 kg

DRUGS (8)
  1. EUTHYROX [Concomitant]
     Active Substance: LEVOTHYROXINE SODIUM
     Dates: start: 20210202, end: 20210503
  2. LENVATINIB [Suspect]
     Active Substance: LENVATINIB
     Route: 048
     Dates: start: 20210421
  3. PEMBROLIZUMAB. [Suspect]
     Active Substance: PEMBROLIZUMAB
     Indication: TRANSITIONAL CELL CARCINOMA
     Route: 041
     Dates: start: 20201222, end: 20210331
  4. HYZAAR FORTE [Concomitant]
     Active Substance: HYDROCHLOROTHIAZIDE\LOSARTAN POTASSIUM
     Dates: start: 201101
  5. VITIS LABRUSCA [Concomitant]
     Dates: start: 20210125
  6. EXCIPIAL LIPO [Concomitant]
     Active Substance: COSMETICS
     Route: 061
     Dates: start: 20210125
  7. LENVATINIB [Suspect]
     Active Substance: LENVATINIB
     Indication: TRANSITIONAL CELL CARCINOMA
     Route: 048
     Dates: start: 20201222, end: 20210401
  8. PEMBROLIZUMAB. [Suspect]
     Active Substance: PEMBROLIZUMAB
     Route: 041
     Dates: start: 20210421, end: 20210421

REACTIONS (1)
  - Stevens-Johnson syndrome [Recovering/Resolving]

NARRATIVE: CASE EVENT DATE: 20210422
